FAERS Safety Report 16748437 (Version 1)
Quarter: 2019Q3

REPORT INFORMATION
  Report Type: Spontaneous
  Country: IE (occurrence: IE)
  Receive Date: 20190828
  Receipt Date: 20190828
  Transmission Date: 20191005
  Serious: Yes (Hospitalization, Other)
  Sender: FDA-Public Use
  Company Number: IE-INGENUS PHARMACEUTICALS, LLC-2019INF000272

PATIENT
  Age: 60 Year
  Sex: Male

DRUGS (2)
  1. CISPLATIN. [Suspect]
     Active Substance: CISPLATIN
     Indication: TRANSITIONAL CELL CARCINOMA
     Dosage: 75 MILLIGRAM/SQ. METER, FOR SIX CYCLES
     Route: 065
  2. GEMCITABINE HYDROCHLORIDE. [Suspect]
     Active Substance: GEMCITABINE HYDROCHLORIDE
     Indication: TRANSITIONAL CELL CARCINOMA
     Dosage: 1000 MILLIGRAM/SQ. METER, FOR SIX CYCLES
     Route: 065

REACTIONS (4)
  - Embolic stroke [Recovering/Resolving]
  - Hypomagnesaemia [Unknown]
  - Cardiac ventricular thrombosis [Recovering/Resolving]
  - Thrombocytopenia [Unknown]
